FAERS Safety Report 8943488 (Version 3)
Quarter: 2013Q1

REPORT INFORMATION
  Report Type: Spontaneous
  Country: US (occurrence: US)
  Receive Date: 20121204
  Receipt Date: 20130118
  Transmission Date: 20140127
  Serious: No
  Sender: FDA-Public Use
  Company Number: US-PFIZER INC-2012302148

PATIENT
  Age: 59 Year
  Sex: Male
  Weight: 68 kg

DRUGS (1)
  1. FLECTOR [Suspect]
     Indication: BACK PAIN
     Dosage: UNKNOWN DOSE, EVERY 36 HOURS
     Route: 062
     Dates: start: 20121128, end: 20121130

REACTIONS (7)
  - Incorrect drug administration duration [Unknown]
  - Drug ineffective [Unknown]
  - Dizziness [Unknown]
  - Nausea [Unknown]
  - Skin reaction [Unknown]
  - Application site pruritus [Unknown]
  - Administration site rash [Unknown]
